FAERS Safety Report 7170755-4 (Version None)
Quarter: 2010Q4

REPORT INFORMATION
  Report Type: 
  Country: None (occurrence: None)
  Receive Date: 20101217
  Receipt Date: 20101209
  Transmission Date: 20110411
  Serious: Yes (Hospitalization)
  Sender: FDA-Public Use
  Company Number: JP-ABBOTT-10P-087-0667096-00

PATIENT
  Sex: Female
  Weight: 51 kg

DRUGS (40)
  1. HUMIRA [Suspect]
     Indication: COLITIS ULCERATIVE
     Route: 058
     Dates: start: 20090710, end: 20100121
  2. HUMIRA [Suspect]
     Route: 058
     Dates: start: 20100122, end: 20100205
  3. HUMIRA [Suspect]
     Route: 058
     Dates: start: 20100218, end: 20100305
  4. HUMIRA [Suspect]
     Route: 058
     Dates: start: 20100319, end: 20100806
  5. PENTASA [Concomitant]
     Indication: COLITIS ULCERATIVE
     Route: 048
     Dates: end: 20101020
  6. PREDNISOLONE [Concomitant]
     Indication: COLITIS ULCERATIVE
     Dosage: DOSE TITRATION
     Route: 048
     Dates: start: 20090605, end: 20090917
  7. PREDNISOLONE [Concomitant]
     Dosage: DOSE TITRATION
     Route: 048
     Dates: start: 20100806, end: 20100820
  8. PREDNISOLONE [Concomitant]
     Dosage: DOSE TITRATION
     Route: 048
     Dates: start: 20100821, end: 20100906
  9. PREDNISOLONE [Concomitant]
     Route: 048
     Dates: start: 20090904, end: 20090917
  10. PREDNISOLONE [Concomitant]
     Route: 048
     Dates: start: 20090918, end: 20091001
  11. PREDNISOLONE [Concomitant]
     Route: 048
     Dates: start: 20091002, end: 20091015
  12. PREDNISOLONE [Concomitant]
     Route: 048
     Dates: start: 20091016, end: 20091029
  13. PREDNISOLONE [Concomitant]
     Route: 048
     Dates: start: 20091030, end: 20091112
  14. PREDNISOLONE [Concomitant]
     Route: 048
     Dates: start: 20091113, end: 20091127
  15. PREDNISOLONE [Concomitant]
     Route: 048
     Dates: start: 20091128, end: 20100414
  16. PREDNISOLONE [Concomitant]
     Route: 048
     Dates: start: 20100415, end: 20100429
  17. PREDNISOLONE [Concomitant]
     Route: 048
     Dates: start: 20100430, end: 20100708
  18. PREDNISOLONE [Concomitant]
     Route: 048
     Dates: start: 20100709, end: 20100805
  19. PREDNISOLONE [Concomitant]
     Route: 048
     Dates: start: 20100709, end: 20100805
  20. PREDNISOLONE [Concomitant]
     Route: 048
     Dates: start: 20100709
  21. PREDNISOLONE [Concomitant]
     Route: 048
     Dates: start: 20100709, end: 20100805
  22. PREDNISOLONE [Concomitant]
     Route: 048
     Dates: start: 20100907, end: 20100913
  23. PREDNISOLONE [Concomitant]
     Route: 048
     Dates: start: 20100914, end: 20100927
  24. PREDNISOLONE [Concomitant]
     Route: 048
     Dates: start: 20100928
  25. JUVELA [Concomitant]
     Indication: HYPERKERATOSIS PALMARIS AND PLANTARIS
     Dosage: ADEQUATE DOSE
     Route: 062
     Dates: start: 20091030
  26. NORVASC [Concomitant]
     Indication: HYPERTENSION
     Route: 048
     Dates: start: 20100306
  27. DIOVAN [Concomitant]
     Indication: HYPERTENSION
     Route: 048
     Dates: start: 20091128
  28. RINDERON VG [Concomitant]
     Indication: ECZEMA
     Dosage: ADEQUATE DOSE
     Route: 062
     Dates: start: 20091211, end: 20091224
  29. TAKEPRON [Concomitant]
     Indication: PROPHYLAXIS AGAINST GASTROINTESTINAL ULCER
     Route: 048
     Dates: start: 20080804
  30. DEPAS [Concomitant]
     Indication: INSOMNIA
     Route: 048
     Dates: start: 20080820
  31. VOLTAREN [Concomitant]
     Indication: ARTHRALGIA
     Dosage: 1 SHEET
     Route: 062
     Dates: start: 20100305
  32. CEFDITOREN PIVOXIL [Concomitant]
     Indication: BURSITIS INFECTIVE
     Route: 048
     Dates: start: 20100812, end: 20100817
  33. LORCAM [Concomitant]
     Indication: BURSITIS INFECTIVE
     Route: 048
     Dates: start: 20100812, end: 20100817
  34. CEFAMEZIN [Concomitant]
     Indication: BURSITIS INFECTIVE
     Route: 042
     Dates: start: 20100807, end: 20100807
  35. CEFAMEZIN [Concomitant]
     Route: 042
     Dates: start: 20100730, end: 20100730
  36. CEFAMEZIN [Concomitant]
     Route: 042
     Dates: start: 20100802, end: 20100802
  37. CEFDITOREN PIVOXIL [Concomitant]
     Route: 048
     Dates: start: 20100730, end: 20100804
  38. CEFDITOREN PIVOXIL [Concomitant]
     Dates: start: 20100812, end: 20100817
  39. LORCAM [Concomitant]
     Route: 048
     Dates: start: 20100730, end: 20100804
  40. LORCAM [Concomitant]
     Route: 048
     Dates: start: 20100812, end: 20100817

REACTIONS (1)
  - MALAISE [None]
